FAERS Safety Report 9502577 (Version 1)
Quarter: 2013Q3

REPORT INFORMATION
  Report Type: Spontaneous
  Country: FR (occurrence: FR)
  Receive Date: 20130906
  Receipt Date: 20130906
  Transmission Date: 20140515
  Serious: No
  Sender: FDA-Public Use
  Company Number: FR-UCBSA-096734

PATIENT
  Age: 47 Year
  Sex: Male

DRUGS (6)
  1. VIMPAT [Suspect]
     Indication: EPILEPSY
     Route: 048
     Dates: start: 20130701, end: 201308
  2. VIMPAT [Suspect]
     Indication: EPILEPSY
     Route: 048
     Dates: start: 2013, end: 20130630
  3. VIMPAT [Suspect]
     Indication: EPILEPSY
     Route: 048
     Dates: start: 2013, end: 2013
  4. EPITOMAX [Concomitant]
     Indication: EPILEPSY
  5. DEROXAT [Concomitant]
     Indication: DEPRESSION
  6. URBANYL [Concomitant]
     Indication: DEPRESSION

REACTIONS (2)
  - Loss of consciousness [Unknown]
  - Malaise [Unknown]
